FAERS Safety Report 18790298 (Version 1)
Quarter: 2021Q1

REPORT INFORMATION
  Report Type: Report from Study
  Country: BR (occurrence: BR)
  Receive Date: 20210126
  Receipt Date: 20210126
  Transmission Date: 20210419
  Serious: Yes (Other)
  Sender: FDA-Public Use
  Company Number: BR-SHIRE-BR202007908

PATIENT

DRUGS (6)
  1. HUMAN IMMUNOGLOBULIN; HYALURONIDASE [Suspect]
     Active Substance: HUMAN IMMUNOGLOBULIN G\HYALURONIDASE RECOMBINANT HUMAN
     Dosage: 300 MILLILITER, 1X A MONTH
     Route: 058
     Dates: start: 202002
  2. HUMAN IMMUNOGLOBULIN; HYALURONIDASE [Suspect]
     Active Substance: HUMAN IMMUNOGLOBULIN G\HYALURONIDASE RECOMBINANT HUMAN
     Dosage: 300 MILLILITER, 1X A MONTH
     Route: 058
     Dates: start: 20200311
  3. HUMAN IMMUNOGLOBULIN; HYALURONIDASE [Suspect]
     Active Substance: HUMAN IMMUNOGLOBULIN G\HYALURONIDASE RECOMBINANT HUMAN
     Dosage: 250 MILLILITER, 1X A MONTH
     Route: 058
     Dates: start: 20190523
  4. HUMAN IMMUNOGLOBULIN; HYALURONIDASE [Suspect]
     Active Substance: HUMAN IMMUNOGLOBULIN G\HYALURONIDASE RECOMBINANT HUMAN
     Dosage: 250 MILLILITER
     Route: 058
     Dates: start: 20200206
  5. HUMAN IMMUNOGLOBULIN; HYALURONIDASE [Suspect]
     Active Substance: HUMAN IMMUNOGLOBULIN G\HYALURONIDASE RECOMBINANT HUMAN
     Dosage: 300 MILLILITER, 1X A MONTH
     Route: 058
     Dates: start: 20190605
  6. HUMAN IMMUNOGLOBULIN; HYALURONIDASE [Suspect]
     Active Substance: HUMAN IMMUNOGLOBULIN G\HYALURONIDASE RECOMBINANT HUMAN
     Indication: PRIMARY IMMUNODEFICIENCY SYNDROME
     Dosage: 300 MILLILITER, 1X A MONTH
     Route: 058
     Dates: start: 2018

REACTIONS (12)
  - Pain [Recovering/Resolving]
  - Hypertension [Recovered/Resolved]
  - Hypoacusis [Recovering/Resolving]
  - Eye haemorrhage [Recovered/Resolved]
  - Malaise [Recovering/Resolving]
  - Spinal disorder [Recovered/Resolved]
  - Sciatica [Recovering/Resolving]
  - Muscle spasms [Recovered/Resolved]
  - Intervertebral disc protrusion [Recovered/Resolved]
  - Influenza [Recovered/Resolved]
  - Spinal pain [Recovered/Resolved]
  - Weight decreased [Recovering/Resolving]

NARRATIVE: CASE EVENT DATE: 202001
